FAERS Safety Report 5105426-9 (Version None)
Quarter: 2006Q3

REPORT INFORMATION
  Report Type: 
  Country: None (occurrence: None)
  Receive Date: 20060915
  Receipt Date: 20060901
  Transmission Date: 20061208
  Serious: Yes (Other)
  Sender: FDA-Public Use
  Company Number: PHBS2006GB14056

PATIENT
  Age: 83 Year
  Sex: Male

DRUGS (2)
  1. DICLOFENAC [Suspect]
  2. CLOPIDOGREL [Suspect]
     Dosage: 75 MG/DAY

REACTIONS (8)
  - CRYOTHERAPY [None]
  - EYE HAEMORRHAGE [None]
  - RETINAL DETACHMENT [None]
  - RETINAL OPERATION [None]
  - VISUAL ACUITY REDUCED [None]
  - VITRECTOMY [None]
  - VITREOUS DISORDER [None]
  - VITREOUS HAEMORRHAGE [None]
